FAERS Safety Report 6787464-3 (Version None)
Quarter: 2010Q2

REPORT INFORMATION
  Report Type: 
  Country: None (occurrence: None)
  Receive Date: 20100623
  Receipt Date: 20070425
  Transmission Date: 20101027
  Serious: No
  Sender: FDA-Public Use
  Company Number: US-PFIZER INC-2007034150

PATIENT

DRUGS (1)
  1. CEREBYX [Suspect]
     Indication: CONVULSION PROPHYLAXIS
     Route: 042

REACTIONS (2)
  - ANTICONVULSANT DRUG LEVEL ABNORMAL [None]
  - ANTICONVULSANT DRUG LEVEL INCREASED [None]
